FAERS Safety Report 17484797 (Version 1)
Quarter: 2020Q1

REPORT INFORMATION
  Report Type: Spontaneous
  Country: JP (occurrence: JP)
  Receive Date: 20200302
  Receipt Date: 20200302
  Transmission Date: 20200409
  Serious: Yes (Death, Other)
  Sender: FDA-Public Use
  Company Number: JP-JAZZ-2020-JP-002971

PATIENT
  Age: 59 Year
  Sex: Male

DRUGS (2)
  1. DEFITELIO [Suspect]
     Active Substance: DEFIBROTIDE SODIUM
     Dosage: 25 MILLIGRAM/KILOGRAM, QD (24 HOURS)
     Route: 042
     Dates: start: 20200130, end: 20200204
  2. DEFITELIO [Suspect]
     Active Substance: DEFIBROTIDE SODIUM
     Indication: PRODUCT USED FOR UNKNOWN INDICATION
     Dosage: 25 MILLIGRAM/KILOGRAM, QD (24 HOURS)
     Route: 042
     Dates: start: 20191217, end: 20200107

REACTIONS (5)
  - Blood pressure decreased [Unknown]
  - Graft versus host disease in liver [Unknown]
  - Multiple organ dysfunction syndrome [Fatal]
  - Gastrointestinal haemorrhage [Fatal]
  - Venoocclusive liver disease [Unknown]

NARRATIVE: CASE EVENT DATE: 20200130
